FAERS Safety Report 23217875 (Version 2)
Quarter: 2023Q4

REPORT INFORMATION
  Report Type: Spontaneous
  Country: RU (occurrence: RU)
  Receive Date: 20231122
  Receipt Date: 20231205
  Transmission Date: 20240109
  Serious: Yes (Other)
  Sender: FDA-Public Use
  Company Number: RU-UCBSA-2023054936

PATIENT
  Sex: Female

DRUGS (18)
  1. KEPPRA [Suspect]
     Active Substance: LEVETIRACETAM
     Indication: Juvenile myoclonic epilepsy
     Dosage: 750 MILLIGRAM, 2X/DAY (BID)
     Dates: start: 2020
  2. KEPPRA [Suspect]
     Active Substance: LEVETIRACETAM
     Dosage: 2000 MILLIGRAM, DAILY
     Dates: start: 202207
  3. LAMOTRIGINE [Suspect]
     Active Substance: LAMOTRIGINE
     Indication: Seizure
     Dosage: UNK
     Dates: start: 202211, end: 2023
  4. TOPAMAX [Suspect]
     Active Substance: TOPIRAMATE
     Indication: Seizure
     Dosage: 75 MG (IN THE MORNING) ? 100 MG (IN THE EVENING)
     Dates: start: 202304
  5. TOPAMAX [Suspect]
     Active Substance: TOPIRAMATE
     Dosage: 75 MILLIGRAM, 2X/DAY (BID),75 MG X 2 TIMES (IN THE MORNING, IN THE EVENING)
  6. TOPAMAX [Suspect]
     Active Substance: TOPIRAMATE
     Dosage: 50 MG (IN THE MORNING) ? 75 MG (IN THE EVENING)
  7. TOPAMAX [Suspect]
     Active Substance: TOPIRAMATE
     Dosage: 50 MILLIGRAM, 2X/DAY (BID)
  8. TOPAMAX [Suspect]
     Active Substance: TOPIRAMATE
     Dosage: 25 MG (IN THE MORNING) ? 50 MG (IN THE EVENING)
  9. TOPAMAX [Suspect]
     Active Substance: TOPIRAMATE
     Dosage: 25 MILLIGRAM, 2X/DAY (BID)
  10. TOPAMAX [Suspect]
     Active Substance: TOPIRAMATE
     Dosage: 25 MILLIGRAM, EVENING
  11. ZONEGRAN [Concomitant]
     Active Substance: ZONISAMIDE
     Indication: Seizure
     Dosage: 25 MG (IN THE MORNING)
  12. ZONEGRAN [Concomitant]
     Active Substance: ZONISAMIDE
     Dosage: 25 MILLIGRAM, 2X/DAY (BID)
  13. ZONEGRAN [Concomitant]
     Active Substance: ZONISAMIDE
     Dosage: 50 MG (IN THE MORNING) ? 25 MG (IN THE MORNING)
  14. ZONEGRAN [Concomitant]
     Active Substance: ZONISAMIDE
     Dosage: 50 MILLIGRAM, 2X/DAY (BID)
  15. ZONEGRAN [Concomitant]
     Active Substance: ZONISAMIDE
     Dosage: 75 MG(IN THE MORNING) ? 50 MG(IN THE EVENING)
  16. ZONEGRAN [Concomitant]
     Active Substance: ZONISAMIDE
     Dosage: 75 MILLIGRAM, 2X/DAY (BID)
  17. ZONEGRAN [Concomitant]
     Active Substance: ZONISAMIDE
     Dosage: 100 MG (IN THE MORNING) ? 75 MG (IN THE EVENING)
  18. ZONEGRAN [Concomitant]
     Active Substance: ZONISAMIDE
     Dosage: 100 MILLIGRAM, 2X/DAY (BID)

REACTIONS (13)
  - Seizure [Unknown]
  - Suicide attempt [Unknown]
  - Generalised tonic-clonic seizure [Unknown]
  - Myoclonic epilepsy [Unknown]
  - Visual impairment [Unknown]
  - Aggression [Unknown]
  - Mood altered [Unknown]
  - Speech disorder [Unknown]
  - Decreased appetite [Unknown]
  - Somnolence [Unknown]
  - Headache [Unknown]
  - Drug intolerance [Unknown]
  - Off label use [Unknown]

NARRATIVE: CASE EVENT DATE: 20200101
